FAERS Safety Report 6607647-2 (Version None)
Quarter: 2010Q1

REPORT INFORMATION
  Report Type: 
  Country: None (occurrence: None)
  Receive Date: 20100223
  Receipt Date: 20100205
  Transmission Date: 20100710
  Serious: Yes (Other)
  Sender: FDA-Public Use
  Company Number: AUR-APL-2010-00453

PATIENT
  Age: 78 Year
  Sex: Female

DRUGS (6)
  1. HYDROCHLOROTHIAZIDE [Suspect]
  2. LIPITOR [Suspect]
     Indication: BLOOD CHOLESTEROL INCREASED
     Dosage: 10-40MG, DAILY, ORAL
     Route: 048
     Dates: start: 20040101
  3. NORVASC [Suspect]
     Indication: HYPERTENSION
     Dosage: 5MG-DAILY-ORAL
     Route: 048
  4. TOPROL-XL [Concomitant]
  5. XALATAN [Concomitant]
  6. ACETYLSALICYLIC ACID SRT [Concomitant]

REACTIONS (6)
  - BLOOD CALCIUM INCREASED [None]
  - BLOOD CHOLESTEROL INCREASED [None]
  - BLOOD TRIGLYCERIDES INCREASED [None]
  - CORONARY ARTERY BYPASS [None]
  - OEDEMA PERIPHERAL [None]
  - OSTEOPOROSIS [None]
